FAERS Safety Report 15132935 (Version 1)
Quarter: 2018Q3

REPORT INFORMATION
  Report Type: Spontaneous
  Country: US (occurrence: US)
  Receive Date: 20180712
  Receipt Date: 20180712
  Transmission Date: 20181010
  Serious: No
  Sender: FDA-Public Use
  Company Number: US-GLENMARK PHARMACEUTICALS-2017GMK030192

PATIENT

DRUGS (3)
  1. SIMPONI [Concomitant]
     Active Substance: GOLIMUMAB
     Indication: PRODUCT USED FOR UNKNOWN INDICATION
     Dosage: UNK
     Route: 065
  2. PROSEC [Concomitant]
     Indication: PRODUCT USED FOR UNKNOWN INDICATION
     Dosage: UNK
     Route: 065
  3. ONDANSETRON ORALLY DISINTEGRATING TABLETS [Suspect]
     Active Substance: ONDANSETRON
     Indication: NAUSEA
     Dosage: 1 DF, QD
     Route: 048
     Dates: start: 20171214, end: 201712

REACTIONS (12)
  - Bedridden [Unknown]
  - Drug ineffective for unapproved indication [Unknown]
  - Product blister packaging issue [Unknown]
  - Vertigo [Unknown]
  - Vomiting [Unknown]
  - Product solubility abnormal [Unknown]
  - Abdominal distension [Unknown]
  - Product use complaint [Unknown]
  - Nausea [Unknown]
  - Headache [Unknown]
  - Product taste abnormal [Unknown]
  - Product substitution issue [Unknown]
